FAERS Safety Report 6509836-4 (Version None)
Quarter: 2009Q4

REPORT INFORMATION
  Report Type: 
  Country: None (occurrence: None)
  Receive Date: 20091222
  Receipt Date: 20090112
  Transmission Date: 20100525
  Serious: No
  Sender: FDA-Public Use
  Company Number: US-ABBOTT-09P-163-0497373-00

PATIENT
  Sex: Male
  Weight: 24.516 kg

DRUGS (3)
  1. OMNICEF [Suspect]
     Indication: SINUSITIS
     Dates: start: 20090109, end: 20090112
  2. MOTRIN [Concomitant]
     Indication: PYREXIA
  3. TYLENOL (CAPLET) [Concomitant]
     Indication: PYREXIA

REACTIONS (3)
  - DYSPEPSIA [None]
  - ERUCTATION [None]
  - PLATELET COUNT DECREASED [None]
